FAERS Safety Report 4311556-1 (Version None)
Quarter: 2004Q1

REPORT INFORMATION
  Report Type: 
  Country: None (occurrence: None)
  Receive Date: 20040304
  Receipt Date: 20040126
  Transmission Date: 20041129
  Serious: No
  Sender: FDA-Public Use
  Company Number: 200324997BWH

PATIENT
  Age: 58 Year
  Sex: Male

DRUGS (8)
  1. LEVITRA [Suspect]
     Indication: ERECTILE DYSFUNCTION
     Dosage: 10 MG, ONCE, ORAL; 10 MG, ONCE, ORAL; 10 MG, QD, ORAL
     Route: 048
     Dates: start: 20030927
  2. LEVITRA [Suspect]
     Indication: ERECTILE DYSFUNCTION
     Dosage: 10 MG, ONCE, ORAL; 10 MG, ONCE, ORAL; 10 MG, QD, ORAL
     Route: 048
     Dates: start: 20030929
  3. LEVITRA [Suspect]
     Indication: ERECTILE DYSFUNCTION
     Dosage: 10 MG, ONCE, ORAL; 10 MG, ONCE, ORAL; 10 MG, QD, ORAL
     Route: 048
     Dates: start: 20030930
  4. METFORMIN HCL [Concomitant]
  5. GLYBURIDE [Concomitant]
  6. PREVACID [Concomitant]
  7. HYZAAR [Concomitant]
  8. LIPITOR [Concomitant]

REACTIONS (2)
  - ERECTILE DYSFUNCTION [None]
  - FLUSHING [None]
